FAERS Safety Report 7954024-8 (Version None)
Quarter: 2011Q4

REPORT INFORMATION
  Report Type: 
  Country: None (occurrence: None)
  Receive Date: 20111129
  Receipt Date: 20111123
  Transmission Date: 20120403
  Serious: Yes (Other)
  Sender: FDA-Public Use
  Company Number: AUR-APL-2011-05795

PATIENT
  Sex: Female

DRUGS (2)
  1. INSULIN [Concomitant]
  2. AMOXICILLIN [Suspect]
     Indication: PHARYNGITIS
     Dosage: 1750 MG (875 MG,2 IN 1 D)

REACTIONS (3)
  - FEELING ABNORMAL [None]
  - FEAR [None]
  - PARANOIA [None]
